FAERS Safety Report 9524685 (Version 1)
Quarter: 2013Q1

REPORT INFORMATION
  Report Type: Spontaneous
  Country: US (occurrence: None)
  Receive Date: 20130314
  Receipt Date: 20130314
  Transmission Date: 20140127
  Serious: No
  Sender: FDA-Public Use
  Company Number: 1301USA002581

PATIENT
  Age: 53 Year
  Sex: Female

DRUGS (4)
  1. VICTRELIS (BOCEPREVIR) CAPSULE, 200MG [Suspect]
     Indication: CHRONIC HEPATITIS C
     Dates: start: 20120628
  2. REBETOL (RIBAVIRIN) CAPSULE [Suspect]
     Indication: CHRONIC HEPATITIS C
     Route: 048
     Dates: start: 20120628
  3. PEGINTRON (PEGINTERFERON ALFA-2B) POWDER FOR INJECTION [Suspect]
     Indication: CHRONIC HEPATITIS C
     Dates: start: 20120628
  4. BENADRYL (DIPHENHYDRAMINE HYDROCHLORIDE) [Concomitant]

REACTIONS (7)
  - Skin exfoliation [None]
  - Alopecia [None]
  - Platelet count decreased [None]
  - Red blood cell count decreased [None]
  - Vomiting [None]
  - Nausea [None]
  - Drug dose omission [None]
